FAERS Safety Report 4440686-9 (Version None)
Quarter: 2004Q3

REPORT INFORMATION
  Report Type: 
  Country: None (occurrence: None)
  Receive Date: 20040903
  Receipt Date: 20040824
  Transmission Date: 20050211
  Serious: Yes (Hospitalization)
  Sender: FDA-Public Use
  Company Number: US-JNJFOC-20040401351

PATIENT
  Sex: Male

DRUGS (2)
  1. DURAGESIC [Suspect]
     Route: 062
     Dates: start: 20030301
  2. LASIX [Concomitant]
     Indication: SWELLING
     Route: 049

REACTIONS (16)
  - ANXIETY [None]
  - ASTHENIA [None]
  - CHEST PAIN [None]
  - DEPENDENCE [None]
  - DIZZINESS [None]
  - DYSPNOEA [None]
  - EMOTIONAL DISTRESS [None]
  - HALLUCINATION [None]
  - HEADACHE [None]
  - INJURY [None]
  - MALAISE [None]
  - MEDICATION ERROR [None]
  - NAUSEA [None]
  - PHARMACEUTICAL PRODUCT COMPLAINT [None]
  - SEDATION [None]
  - VOMITING [None]
